FAERS Safety Report 5705043-3 (Version None)
Quarter: 2008Q2

REPORT INFORMATION
  Report Type: 
  Country: None (occurrence: None)
  Receive Date: 20080414
  Receipt Date: 20080402
  Transmission Date: 20081010
  Serious: Yes (Other)
  Sender: FDA-Public Use
  Company Number: US-PFIZER INC-2008030882

PATIENT
  Age: 24 Year
  Sex: Male

DRUGS (1)
  1. CHANTIX [Suspect]
     Indication: SMOKING CESSATION THERAPY
     Dates: start: 20080213, end: 20080201

REACTIONS (4)
  - ABNORMAL BEHAVIOUR [None]
  - MIGRAINE [None]
  - MOOD ALTERED [None]
  - SUICIDAL IDEATION [None]
